FAERS Safety Report 13073195 (Version 1)
Quarter: 2016Q4

REPORT INFORMATION
  Report Type: Spontaneous
  Country: PT (occurrence: PT)
  Receive Date: 20161229
  Receipt Date: 20161229
  Transmission Date: 20170207
  Serious: Yes (Other)
  Sender: FDA-Public Use
  Company Number: PT-TEVA-722618ISR

PATIENT
  Sex: Female
  Weight: 84 kg

DRUGS (3)
  1. GLUCOSAMINA [Concomitant]
  2. DAFLON 500 [Concomitant]
     Route: 048
  3. ANASTROZOL TEVA [Suspect]
     Active Substance: ANASTROZOLE
     Route: 048
     Dates: start: 20131021

REACTIONS (4)
  - Paraesthesia [Not Recovered/Not Resolved]
  - Teeth brittle [Not Recovered/Not Resolved]
  - Arthralgia [Not Recovered/Not Resolved]
  - Bone loss [Not Recovered/Not Resolved]

NARRATIVE: CASE EVENT DATE: 2014
